FAERS Safety Report 7245606-X (Version None)
Quarter: 2011Q1

REPORT INFORMATION
  Report Type: 
  Country: None (occurrence: None)
  Receive Date: 20110126
  Receipt Date: 20110113
  Transmission Date: 20110831
  Serious: Yes (Other)
  Sender: FDA-Public Use
  Company Number: PHHY2010IN87812

PATIENT
  Age: 15 Year
  Sex: Male

DRUGS (3)
  1. RISPERIDONE [Suspect]
     Indication: SCHIZOPHRENIA
     Dosage: 1 MG, QD
  2. RISPERIDONE [Suspect]
     Dosage: 2 MG, QD
  3. CLONAZEPAM [Suspect]
     Indication: SCHIZOPHRENIA

REACTIONS (5)
  - ANGIOEDEMA [None]
  - PERIORBITAL OEDEMA [None]
  - OEDEMA PERIPHERAL [None]
  - LIP SWELLING [None]
  - SWELLING FACE [None]
